FAERS Safety Report 4451315-2 (Version None)
Quarter: 2004Q3

REPORT INFORMATION
  Report Type: 
  Country: None (occurrence: None)
  Receive Date: 20040916
  Receipt Date: 20040805
  Transmission Date: 20050211
  Serious: Yes (Hospitalization)
  Sender: FDA-Public Use
  Company Number: US-GLAXOSMITHKLINE-A0521193A

PATIENT
  Age: 29 Year
  Sex: Female
  Weight: 100.5 kg

DRUGS (10)
  1. PAXIL CR [Suspect]
     Dosage: 37.5MG UNKNOWN
     Route: 048
     Dates: start: 20040201, end: 20040501
  2. TOPAMAX [Suspect]
     Indication: MOOD SWINGS
     Dosage: 25MG PER DAY
     Route: 048
  3. BUTALBITAL [Concomitant]
  4. PROMETHAZINE [Concomitant]
  5. TRAZODONE [Concomitant]
  6. ACETAMINOPHEN AND HYDROCODONE BITARTRATE [Concomitant]
  7. PANTOPRAZOLE [Concomitant]
  8. GABAPENTIN [Concomitant]
  9. CARISOPRODOL [Concomitant]
  10. LANSOPRAZOLE [Concomitant]

REACTIONS (24)
  - AGGRESSION [None]
  - ASTHENIA [None]
  - BACK INJURY [None]
  - BACK PAIN [None]
  - CONFUSIONAL STATE [None]
  - CONTUSION [None]
  - CONVERSION DISORDER [None]
  - CONVULSION [None]
  - DEPRESSED LEVEL OF CONSCIOUSNESS [None]
  - DISORIENTATION [None]
  - DRUG ABUSER [None]
  - FACE INJURY [None]
  - FALL [None]
  - HEAD INJURY [None]
  - HOMICIDAL IDEATION [None]
  - LOSS OF CONSCIOUSNESS [None]
  - MEMORY IMPAIRMENT [None]
  - OVERDOSE [None]
  - SENSORY LOSS [None]
  - STUPOR [None]
  - SUICIDAL IDEATION [None]
  - SUICIDE ATTEMPT [None]
  - TOOTHACHE [None]
  - WEIGHT INCREASED [None]
